FAERS Safety Report 6628747-7 (Version None)
Quarter: 2010Q1

REPORT INFORMATION
  Report Type: 
  Country: None (occurrence: None)
  Receive Date: 20100311
  Receipt Date: 20100303
  Transmission Date: 20100710
  Serious: Yes (Other)
  Sender: FDA-Public Use
  Company Number: US-ELI_LILLY_AND_COMPANY-US201003002467

PATIENT
  Sex: Female

DRUGS (10)
  1. HUMALOG [Suspect]
     Indication: DIABETES MELLITUS
     Dosage: 7 U, 3/D
     Dates: start: 20040101
  2. HUMALOG [Suspect]
     Dosage: UNK, AS NEEDED
  3. CREON [Concomitant]
     Dosage: UNK, 3/D
  4. LISINOPRIL [Concomitant]
  5. CELEBREX [Concomitant]
  6. OMEPRAZOLE [Concomitant]
  7. ACTONEL [Concomitant]
  8. TIMOLOL MALEATE [Concomitant]
  9. PRED FORTE [Concomitant]
  10. LANTUS [Concomitant]

REACTIONS (8)
  - BLOOD GLUCOSE INCREASED [None]
  - CORNEAL DYSTROPHY [None]
  - INCORRECT DOSE ADMINISTERED [None]
  - MACULOPATHY [None]
  - RETINAL DETACHMENT [None]
  - RHEUMATOID ARTHRITIS [None]
  - SINUSITIS ASPERGILLUS [None]
  - VISUAL ACUITY REDUCED [None]
